FAERS Safety Report 14999529 (Version 1)
Quarter: 2018Q2

REPORT INFORMATION
  Report Type: Spontaneous
  Country: JP (occurrence: JP)
  Receive Date: 20180612
  Receipt Date: 20180612
  Transmission Date: 20180711
  Serious: Yes (Life-Threatening, Hospitalization, Other)
  Sender: FDA-Public Use
  Company Number: JP-ACCORD-053740

PATIENT
  Age: 73 Year
  Sex: Male

DRUGS (1)
  1. DOCETAXEL. [Suspect]
     Active Substance: DOCETAXEL
     Indication: ANGIOSARCOMA METASTATIC
     Dosage: RECEIVED FIVE CYCLES FOR 4 WEEKS EACH,ON DAYS 1, 8, AND 15, FOLLOWED BY 1 WEEK OFF,REPEATED 28 DAYS
     Route: 042
     Dates: start: 201402, end: 201406

REACTIONS (1)
  - Drug ineffective [Unknown]
